FAERS Safety Report 12483357 (Version 2)
Quarter: 2016Q2

REPORT INFORMATION
  Report Type: Report from Study
  Country: US (occurrence: US)
  Receive Date: 20160621
  Receipt Date: 20160627
  Transmission Date: 20160815
  Serious: Yes (Disabling, Other)
  Sender: FDA-Public Use
  Company Number: US-ROCHE-1779255

PATIENT
  Age: 62 Year
  Sex: Male
  Weight: 64.47 kg

DRUGS (27)
  1. ESBRIET [Suspect]
     Active Substance: PIRFENIDONE
     Indication: IDIOPATHIC PULMONARY FIBROSIS
     Route: 048
     Dates: start: 20160330
  2. AMBRISENTAN [Concomitant]
     Active Substance: AMBRISENTAN
  3. TORSEMIDE. [Concomitant]
     Active Substance: TORSEMIDE
     Route: 048
  4. DYMISTA [Concomitant]
     Active Substance: AZELASTINE HYDROCHLORIDE\FLUTICASONE PROPIONATE
     Route: 065
     Dates: start: 20160606
  5. LETAIRIS [Concomitant]
     Active Substance: AMBRISENTAN
     Route: 048
  6. KLOR-CON M [Concomitant]
     Active Substance: POTASSIUM CHLORIDE
     Route: 065
     Dates: start: 20151218
  7. GABAPENTIN. [Concomitant]
     Active Substance: GABAPENTIN
     Dosage: 1 CAPSULE IN AM AND 1 CAPSULE IN PM
     Route: 065
     Dates: start: 20160404
  8. NASONEX [Concomitant]
     Active Substance: MOMETASONE FUROATE
     Route: 065
  9. VITAMIN D3 [Concomitant]
     Active Substance: CHOLECALCIFEROL
     Dosage: 1000 UNIT
     Route: 048
  10. ACETAZOLAMIDE. [Concomitant]
     Active Substance: ACETAZOLAMIDE
     Route: 048
     Dates: start: 20160510
  11. ADCIRCA [Concomitant]
     Active Substance: TADALAFIL
     Route: 048
     Dates: start: 20160222
  12. SPIRONOLACTONE. [Concomitant]
     Active Substance: SPIRONOLACTONE
     Route: 048
  13. CELLCEPT [Concomitant]
     Active Substance: MYCOPHENOLATE MOFETIL\MYCOPHENOLATE MOFETIL HYDROCHLORIDE
     Route: 065
  14. CLINDAMYCIN [Concomitant]
     Active Substance: CLINDAMYCIN\CLINDAMYCIN PHOSPHATE
     Route: 065
  15. FINASTERIDE. [Concomitant]
     Active Substance: FINASTERIDE
     Route: 048
     Dates: start: 20160404
  16. JUBLIA [Concomitant]
     Active Substance: EFINACONAZOLE
     Route: 065
     Dates: start: 20151231
  17. PNEUMOCOCCAL CONJUGATE VACCINE [Concomitant]
     Active Substance: PNEUMOCOCCAL VACCINE POLYVALENT
     Route: 030
     Dates: start: 20141218
  18. METRONIDAZOLE. [Concomitant]
     Active Substance: METRONIDAZOLE
     Route: 065
     Dates: start: 20160531
  19. NICARDIPINE [Concomitant]
     Active Substance: NICARDIPINE
     Route: 048
     Dates: start: 20160606
  20. METRONIDAZOLE. [Concomitant]
     Active Substance: METRONIDAZOLE
  21. SILVER SULFADIAZINE. [Concomitant]
     Active Substance: SILVER SULFADIAZINE
     Route: 061
     Dates: start: 20160606
  22. FOLIC ACID. [Concomitant]
     Active Substance: FOLIC ACID
     Route: 048
  23. WARFARIN [Concomitant]
     Active Substance: WARFARIN
  24. TDAP VACCINE [Concomitant]
     Active Substance: DIPHTHERIA AND TETANUS TOXOIDS AND PERTUSSIS VACCINE
     Route: 065
     Dates: start: 20121213
  25. DULOXETINE. [Concomitant]
     Active Substance: DULOXETINE
     Route: 065
  26. INFLUENZA VACCINES [Concomitant]
     Active Substance: INFLUENZA VIRUS VACCINE
     Route: 030
     Dates: start: 20151008
  27. INFLUENZA VACCINES [Concomitant]
     Active Substance: INFLUENZA VIRUS VACCINE
     Route: 030
     Dates: start: 20140915

REACTIONS (4)
  - Diarrhoea [Recovered/Resolved]
  - Oedema [Recovering/Resolving]
  - Clostridium difficile infection [Recovering/Resolving]
  - Cellulitis [Unknown]

NARRATIVE: CASE EVENT DATE: 20160528
